FAERS Safety Report 6692294-7 (Version None)
Quarter: 2010Q2

REPORT INFORMATION
  Report Type: 
  Country: None (occurrence: None)
  Receive Date: 20100422
  Receipt Date: 20100413
  Transmission Date: 20101027
  Serious: Yes (Hospitalization)
  Sender: FDA-Public Use
  Company Number: FR-EISAI INC.-E3810-03721-SPO-FR

PATIENT
  Sex: Female

DRUGS (12)
  1. PARIET (RABEPRAZOLE) [Suspect]
     Route: 048
     Dates: end: 20100227
  2. PARIET (RABEPRAZOLE) [Suspect]
     Dosage: UNKNOWN
     Route: 048
     Dates: start: 20100305
  3. IXPRIM [Suspect]
     Indication: PAIN
     Dosage: UNKNOWN
     Route: 048
     Dates: start: 20090919, end: 20100227
  4. ZADITEN [Suspect]
     Dosage: UNKNOWN
     Route: 048
     Dates: start: 20080101, end: 20100227
  5. SERMION [Suspect]
     Dosage: UNKNOWN
     Route: 048
     Dates: end: 20100227
  6. ATACAND [Concomitant]
  7. SERESTA [Concomitant]
  8. CORDARONE [Concomitant]
  9. ACTONEL [Concomitant]
  10. ERGOCALCIFEROL [Concomitant]
  11. ANAFRANIL [Concomitant]
  12. THEOPHYLLINE [Concomitant]

REACTIONS (1)
  - HALLUCINATION, VISUAL [None]
